FAERS Safety Report 7435234-5 (Version None)
Quarter: 2011Q2

REPORT INFORMATION
  Report Type: 
  Country: None (occurrence: None)
  Receive Date: 20110425
  Receipt Date: 20110420
  Transmission Date: 20111010
  Serious: Yes (Life-Threatening)
  Sender: FDA-Public Use
  Company Number: IT-ASTRAZENECA-2011SE22535

PATIENT
  Age: 27565 Day
  Sex: Male

DRUGS (4)
  1. MARCAINE [Suspect]
     Indication: SPINAL ANAESTHESIA
     Route: 037
     Dates: start: 20110316, end: 20110316
  2. MEFOXIN [Suspect]
     Indication: ANTIBIOTIC PROPHYLAXIS
     Route: 042
     Dates: start: 20110316, end: 20110316
  3. IPNOVEL [Suspect]
     Indication: SPINAL ANAESTHESIA
     Route: 042
     Dates: start: 20110316, end: 20110316
  4. IOPAMIRO [Suspect]
     Indication: SCAN WITH CONTRAST
     Route: 042
     Dates: start: 20110316, end: 20110316

REACTIONS (1)
  - ANAPHYLACTIC SHOCK [None]
